FAERS Safety Report 9717634 (Version 1)
Quarter: 2013Q4

REPORT INFORMATION
  Report Type: Report from Study
  Country: FR (occurrence: FR)
  Receive Date: 20131127
  Receipt Date: 20131127
  Transmission Date: 20140711
  Serious: Yes (Other)
  Sender: FDA-Public Use
  Company Number: FR-PFIZER INC-2013332520

PATIENT
  Age: 45 Year
  Sex: Male
  Weight: 86 kg

DRUGS (12)
  1. ATGAM [Suspect]
     Indication: BONE MARROW FAILURE
     Dosage: 40 MG/KG, DAILY
     Route: 042
     Dates: start: 20130517, end: 20130520
  2. NEORAL [Concomitant]
     Indication: BONE MARROW FAILURE
     Dosage: 250 MG, 2X/DAY
     Dates: start: 20130521, end: 20130722
  3. NEORAL [Concomitant]
     Dosage: 225 MG, 2X/DAY
     Dates: start: 20130723
  4. POLARAMINE [Concomitant]
     Indication: PREMEDICATION
  5. SOLU-MEDROL [Concomitant]
     Indication: PREMEDICATION
     Dosage: 20 MG, DAILY
  6. BACTRIM [Concomitant]
     Indication: PROPHYLAXIS
     Dosage: UNK
     Dates: start: 201305
  7. ZELITREX [Concomitant]
     Indication: PROPHYLAXIS
     Dosage: UNK
     Dates: start: 201305
  8. FOLINIC ACID [Concomitant]
     Dosage: 3X/DAY
  9. GRANOCYTE [Concomitant]
     Dosage: 3 INJECTIONS WEEKLY
     Dates: start: 20130614, end: 20130709
  10. TAVANIC [Concomitant]
     Indication: PROPHYLAXIS
  11. VANCOMYCIN [Concomitant]
     Indication: STAPHYLOCOCCAL INFECTION
     Dosage: UNK
     Dates: start: 201305
  12. TAZOCILLINE [Concomitant]
     Indication: STAPHYLOCOCCAL INFECTION
     Dosage: UNK
     Dates: start: 201305

REACTIONS (8)
  - Chills [Recovered/Resolved]
  - Purpura [Recovered/Resolved]
  - Rash pruritic [Recovered/Resolved]
  - Infusion site reaction [Unknown]
  - Diabetes mellitus [Recovering/Resolving]
  - Myopia [Not Recovered/Not Resolved]
  - Renal impairment [Recovering/Resolving]
  - Hyperuricaemia [Not Recovered/Not Resolved]
